FAERS Safety Report 5969372-0 (Version None)
Quarter: 2008Q4

REPORT INFORMATION
  Report Type: 
  Country: None (occurrence: None)
  Receive Date: 20081126
  Receipt Date: 20081118
  Transmission Date: 20090506
  Serious: Yes (Other)
  Sender: FDA-Public Use
  Company Number: US-PFIZER INC-2008083011

PATIENT
  Sex: Female
  Weight: 70.3 kg

DRUGS (3)
  1. LYRICA [Suspect]
     Indication: FIBROMYALGIA
     Route: 048
     Dates: start: 20080601, end: 20080801
  2. LYRICA [Suspect]
     Indication: FATIGUE
  3. MOTRIN [Concomitant]
     Dosage: DAILY DOSE:800MG

REACTIONS (16)
  - AMNESIA [None]
  - BLOOD PRESSURE INCREASED [None]
  - CONFUSIONAL STATE [None]
  - DEPRESSED MOOD [None]
  - DISTURBANCE IN ATTENTION [None]
  - DYSMENORRHOEA [None]
  - ENERGY INCREASED [None]
  - EUPHORIC MOOD [None]
  - FEELING ABNORMAL [None]
  - HEADACHE [None]
  - MENTAL IMPAIRMENT [None]
  - OEDEMA [None]
  - PAIN [None]
  - THERAPEUTIC RESPONSE UNEXPECTED [None]
  - UNEVALUABLE EVENT [None]
  - VISUAL IMPAIRMENT [None]
